FAERS Safety Report 6725482-1 (Version None)
Quarter: 2010Q2

REPORT INFORMATION
  Report Type: 
  Country: None (occurrence: None)
  Receive Date: 20100514
  Receipt Date: 20100505
  Transmission Date: 20101027
  Serious: Yes (Hospitalization)
  Sender: FDA-Public Use
  Company Number: CH-ALLERGAN-1006159US

PATIENT
  Age: 30 Year
  Sex: Male

DRUGS (2)
  1. KETOROLAC TROMETHAMINE UNK [Suspect]
     Indication: PROPHYLAXIS
     Dosage: UNK
     Route: 047
  2. NEOMYCIN;POLYMYXIN B UNK [Concomitant]
     Indication: PROPHYLAXIS
     Dosage: UNK
     Route: 047

REACTIONS (1)
  - KERATITIS [None]
